FAERS Safety Report 6848361-8 (Version None)
Quarter: 2010Q3

REPORT INFORMATION
  Report Type: 
  Country: None (occurrence: None)
  Receive Date: 20100716
  Receipt Date: 20100707
  Transmission Date: 20110219
  Serious: Yes (Other)
  Sender: FDA-Public Use
  Company Number: US-JNJCH-2010016173

PATIENT

DRUGS (1)
  1. LISTERINE WHITENING QUICK DISSOLVING STRIPS [Suspect]
     Indication: DENTAL CARE
     Dosage: TEXT:UNKNOWN
     Route: 048

REACTIONS (3)
  - DRUG INEFFECTIVE [None]
  - MOUTH INJURY [None]
  - PRODUCT QUALITY ISSUE [None]
